FAERS Safety Report 5044304-0 (Version None)
Quarter: 2006Q3

REPORT INFORMATION
  Report Type: 
  Country: None (occurrence: None)
  Receive Date: 20060706
  Receipt Date: 20020905
  Transmission Date: 20061208
  Serious: Yes (Hospitalization)
  Sender: FDA-Public Use
  Company Number: BE-NOVOPROD-219893

PATIENT
  Age: 28 Year
  Sex: Male

DRUGS (7)
  1. ACTRAPID? PENFILL? HM(GE) 3 ML [Suspect]
     Indication: DIABETES MELLITUS
     Dosage: 26 IU, QD
     Route: 058
     Dates: start: 19890101, end: 20021015
  2. ACTRAPID? PENFILL? HM(GE) 3 ML [Suspect]
     Dosage: 16 IU, QD
     Route: 058
     Dates: start: 20020830
  3. MONOTARD? HM(GE) [Concomitant]
     Indication: DIABETES MELLITUS
     Dosage: 45 IU, QD
     Route: 058
  4. MONOTARD? HM(GE) [Concomitant]
     Dosage: 63 IU, QD
     Dates: start: 20020830
  5. MONOTARD? HM(GE) [Concomitant]
     Dosage: 55-60 IU /DAILY
     Dates: start: 20040101, end: 20040101
  6. TENORMIN [Concomitant]
     Dosage: 50 MG, QD
     Route: 048
  7. INSULIN [Concomitant]
     Indication: HYPERGLYCAEMIA
     Dosage: 55-60 IU QD
     Dates: start: 20040101

REACTIONS (8)
  - DIABETES MELLITUS INADEQUATE CONTROL [None]
  - DISEASE RECURRENCE [None]
  - HYPERSENSITIVITY [None]
  - IMMUNOSUPPRESSION [None]
  - MALAISE [None]
  - PALPITATIONS [None]
  - REACTION TO DRUG EXCIPIENTS [None]
  - SYNCOPE [None]
